FAERS Safety Report 5406792-7 (Version None)
Quarter: 2007Q3

REPORT INFORMATION
  Report Type: 
  Country: None (occurrence: None)
  Receive Date: 20070807
  Receipt Date: 20070801
  Transmission Date: 20080115
  Serious: Yes (Life-Threatening, Hospitalization, Other)
  Sender: FDA-Public Use
  Company Number: US-BAYER-200711661BWH

PATIENT
  Age: 54 Year
  Sex: Male
  Weight: 116 kg

DRUGS (4)
  1. AVELOX [Suspect]
     Indication: SINUSITIS
     Dosage: TOTAL DAILY DOSE: 400 MG  UNIT DOSE: 400 MG
     Route: 048
     Dates: start: 20070525
  2. GLUCOPHAGE [Concomitant]
  3. COUGH SYRUP WITH HYDROCODONE [Concomitant]
  4. HYCOTUSS [Concomitant]

REACTIONS (5)
  - EYE PENETRATION [None]
  - HEAD INJURY [None]
  - LOSS OF CONSCIOUSNESS [None]
  - ROAD TRAFFIC ACCIDENT [None]
  - SKIN LACERATION [None]
